FAERS Safety Report 15815291 (Version 1)
Quarter: 2019Q1

REPORT INFORMATION
  Report Type: Spontaneous
  Country: DE (occurrence: DE)
  Receive Date: 20190112
  Receipt Date: 20190112
  Transmission Date: 20190417
  Serious: Yes (Hospitalization)
  Sender: FDA-Public Use
  Company Number: DE-TEVA-2019-DE-997916

PATIENT
  Age: 55 Year
  Sex: Male
  Weight: 79 kg

DRUGS (8)
  1. FORTOVASE [Concomitant]
     Active Substance: SAQUINAVIR
     Dosage: 2 GRAM DAILY; .5 DF, BID
     Route: 048
     Dates: start: 20020115, end: 20020215
  2. VIDEX [Concomitant]
     Active Substance: DIDANOSINE
     Dosage: 1 DOSAGE FORMS DAILY; 1 DF, QD
     Route: 048
     Dates: start: 20020115, end: 20020115
  3. DICLOFENAC [Suspect]
     Active Substance: DICLOFENAC
     Route: 048
     Dates: start: 20020209, end: 20020217
  4. ZERIT [Concomitant]
     Active Substance: STAVUDINE
     Dosage: 2 DOSAGE FORMS DAILY; 1 DF, BID
     Route: 048
     Dates: start: 20020115, end: 20020115
  5. COTRIM [Concomitant]
     Active Substance: SULFAMETHOXAZOLE\TRIMETHOPRIM
     Dosage: UNK, UNK
     Dates: start: 200201
  6. VOLTAREN [Suspect]
     Active Substance: DICLOFENAC SODIUM
     Dosage: 1 DOSAGE FORMS DAILY; 1 DF, QD
     Route: 048
     Dates: start: 20020115, end: 20020125
  7. NORVIR [Concomitant]
     Active Substance: RITONAVIR
     Dosage: 100 MILLIGRAM DAILY; 1 DF, QD
     Route: 048
     Dates: start: 20020115, end: 20020115
  8. ASPIRIN ^BAYER^ [Concomitant]
     Active Substance: ASPIRIN
     Dosage: 10DF/YEAR
     Route: 048
     Dates: start: 1980, end: 2002

REACTIONS (9)
  - Platelet count decreased [Unknown]
  - Shock symptom [Unknown]
  - Acute abdomen [Unknown]
  - Generalised erythema [Unknown]
  - White blood cell count decreased [Unknown]
  - Red blood cell count decreased [Unknown]
  - Haemoglobin decreased [Unknown]
  - Agranulocytosis [Unknown]
  - Haematocrit decreased [Unknown]

NARRATIVE: CASE EVENT DATE: 20020217
